FAERS Safety Report 19598472 (Version 2)
Quarter: 2021Q3

REPORT INFORMATION
  Report Type: Report from Study
  Country: NG (occurrence: NG)
  Receive Date: 20210722
  Receipt Date: 20210809
  Transmission Date: 20211014
  Serious: Yes (Death, Other)
  Sender: FDA-Public Use
  Company Number: NG-BAYER-2021-176472

PATIENT
  Age: 42 Year
  Sex: Male

DRUGS (6)
  1. BEDAQUILINE [Suspect]
     Active Substance: BEDAQUILINE
     Indication: TUBERCULOSIS
  2. MOXIFLOXACIN. [Suspect]
     Active Substance: MOXIFLOXACIN
     Indication: PULMONARY TUBERCULOSIS
  3. LINEZOLID. [Concomitant]
     Active Substance: LINEZOLID
     Indication: TUBERCULOSIS
  4. PYRAZINAMIDE. [Suspect]
     Active Substance: PYRAZINAMIDE
     Indication: TUBERCULOSIS
  5. CLOFAZIMINE [Suspect]
     Active Substance: CLOFAZIMINE
     Indication: TUBERCULOSIS
  6. ISONIAZID. [Suspect]
     Active Substance: ISONIAZID
     Indication: TUBERCULOSIS
     Dosage: HIGH?DOSE

REACTIONS (3)
  - Transaminases increased [Fatal]
  - Anaemia [Recovered/Resolved]
  - Chronic hepatitis B [Fatal]
